FAERS Safety Report 9109465 (Version 3)
Quarter: 2013Q2

REPORT INFORMATION
  Report Type: Spontaneous
  Country: US (occurrence: US)
  Receive Date: 20130222
  Receipt Date: 20130423
  Transmission Date: 20140414
  Serious: Yes (Other)
  Sender: FDA-Public Use
  Company Number: US-JNJFOC-20130208407

PATIENT
  Age: 13 Year
  Sex: Female
  Weight: 50 kg

DRUGS (10)
  1. REMICADE [Suspect]
     Indication: CROHN^S DISEASE
     Dosage: 0,2 WEEKS
     Route: 042
  2. REMICADE [Suspect]
     Indication: CROHN^S DISEASE
     Route: 042
     Dates: start: 20130205, end: 20130205
  3. CALCIUM [Concomitant]
     Route: 065
  4. HYDROCORTISONE [Concomitant]
     Indication: PREMEDICATION
     Route: 042
     Dates: start: 20130205
  5. TYLENOL [Concomitant]
     Indication: PREMEDICATION
     Route: 048
     Dates: start: 20130205
  6. BENADRYL [Concomitant]
     Indication: PREMEDICATION
     Route: 048
     Dates: start: 20130205
  7. MULTIPLE VITAMIN [Concomitant]
     Route: 065
  8. VITAMIN D [Concomitant]
     Route: 065
  9. FOLIC ACID [Concomitant]
     Route: 065
  10. MIRALAX [Concomitant]
     Route: 065

REACTIONS (7)
  - Swelling face [Recovered/Resolved]
  - Pharyngeal oedema [Recovered/Resolved]
  - Urticaria [Recovered/Resolved]
  - Anxiety [Recovered/Resolved]
  - Dyspnoea [Recovered/Resolved]
  - Infusion related reaction [Recovered/Resolved]
  - Weight increased [Unknown]
